FAERS Safety Report 23343042 (Version 1)
Quarter: 2023Q4

REPORT INFORMATION
  Report Type: Spontaneous
  Country: US (occurrence: None)
  Receive Date: 20231226
  Receipt Date: 20231226
  Transmission Date: 20240110
  Serious: Yes (Death)
  Sender: FDA-Public Use
  Company Number: None

PATIENT
  Age: 59 Year
  Sex: Male

DRUGS (1)
  1. TACROLIMUS [Suspect]
     Active Substance: TACROLIMUS
     Indication: Liver transplant
     Dosage: OTHER QUANTITY : 1 CAP AM-2CAP PM;?FREQUENCY : AS DIRECTED;?
     Route: 048
     Dates: start: 201708

REACTIONS (1)
  - Death [None]

NARRATIVE: CASE EVENT DATE: 20231220
